FAERS Safety Report 19697316 (Version 1)
Quarter: 2021Q3

REPORT INFORMATION
  Report Type: Spontaneous
  Country: US (occurrence: US)
  Receive Date: 20210813
  Receipt Date: 20210813
  Transmission Date: 20211014
  Serious: Yes (Death)
  Sender: FDA-Public Use
  Company Number: None

PATIENT
  Age: 6 Year
  Sex: Male
  Weight: 181.4 kg

DRUGS (9)
  1. MEKTOVI [Suspect]
     Active Substance: BINIMETINIB
     Indication: MALIGNANT MELANOMA OF SITES OTHER THAN SKIN
     Route: 048
     Dates: start: 20210702
  2. ONDANSETRON [Concomitant]
     Active Substance: ONDANSETRON
  3. HYDROCORTISONE. [Concomitant]
     Active Substance: HYDROCORTISONE
  4. LOMITIL [Concomitant]
  5. LEVETIRACETAM. [Concomitant]
     Active Substance: LEVETIRACETAM
  6. BRAFTOVI [Suspect]
     Active Substance: ENCORAFENIB
     Indication: MALIGNANT MELANOMA OF SITES OTHER THAN SKIN
     Route: 048
     Dates: start: 20210702
  7. LEVOTHYROXINE. [Concomitant]
     Active Substance: LEVOTHYROXINE
  8. OMEPRAZOLE. [Concomitant]
     Active Substance: OMEPRAZOLE
  9. FLUTICASONE PROPIONATE. [Concomitant]
     Active Substance: FLUTICASONE PROPIONATE

REACTIONS (1)
  - Death [None]
